FAERS Safety Report 7934185-7 (Version None)
Quarter: 2011Q4

REPORT INFORMATION
  Report Type: 
  Country: None (occurrence: None)
  Receive Date: 20111122
  Receipt Date: 20111114
  Transmission Date: 20120403
  Serious: Yes (Other)
  Sender: FDA-Public Use
  Company Number: PHHY2011FR93368

PATIENT
  Sex: Male
  Weight: 97 kg

DRUGS (2)
  1. GLEEVEC [Suspect]
     Dosage: 400 MG DAILY
     Dates: start: 20020101, end: 20050101
  2. GLEEVEC [Suspect]
     Dosage: 400 MG, DAILY
     Route: 048
     Dates: start: 20050101

REACTIONS (11)
  - METASTASES TO LIVER [None]
  - PULMONARY HYPERTENSION [None]
  - MUSCLE SPASMS [None]
  - DYSPNOEA [None]
  - DRUG DEPENDENCE [None]
  - OEDEMA PERIPHERAL [None]
  - BLOOD PRESSURE DIASTOLIC INCREASED [None]
  - PULMONARY EMBOLISM [None]
  - ANOXIA [None]
  - TRANSIENT ISCHAEMIC ATTACK [None]
  - WEIGHT INCREASED [None]
